FAERS Safety Report 6987491-7 (Version None)
Quarter: 2010Q3

REPORT INFORMATION
  Report Type: 
  Country: None (occurrence: None)
  Receive Date: 20100916
  Receipt Date: 20100909
  Transmission Date: 20110219
  Serious: Yes (Hospitalization, Other)
  Sender: FDA-Public Use
  Company Number: PHHY2010AU37178

PATIENT
  Sex: Male

DRUGS (5)
  1. CLOZARIL [Suspect]
     Dosage: 375 MG, QD
     Dates: start: 19990901
  2. CLOZARIL [Suspect]
     Dosage: UNK
     Dates: start: 20100608
  3. VALPROATE SODIUM [Concomitant]
     Dosage: 500 MG MANE AND 1000 MG NOCTE
     Route: 048
  4. AMISULPRIDE [Concomitant]
     Dosage: 200 MG NOCTE
     Route: 048
  5. RAMIPRIL [Concomitant]
     Indication: HYPERTENSION
     Dosage: 5 MG MANE

REACTIONS (5)
  - HERPES ZOSTER [None]
  - NEUTROPHIL COUNT DECREASED [None]
  - PYREXIA [None]
  - VARICELLA [None]
  - WHITE BLOOD CELL COUNT DECREASED [None]
